FAERS Safety Report 8614027-7 (Version None)
Quarter: 2012Q3

REPORT INFORMATION
  Report Type: 
  Country: None (occurrence: None)
  Receive Date: 20120823
  Receipt Date: 20120810
  Transmission Date: 20120928
  Serious: Yes (Hospitalization, Disabling, Other)
  Sender: FDA-Public Use
  Company Number: US-009507513-1203USA03349

PATIENT

DRUGS (4)
  1. FOSAMAX [Suspect]
     Indication: OSTEOPENIA
     Dosage: 70 MG, UNK
     Route: 048
     Dates: end: 20080701
  2. FOSAMAX [Suspect]
     Indication: OSTEOPOROSIS
     Dosage: 10 MG, UNK
     Route: 048
     Dates: start: 19950101
  3. CALCIUM D (CALCIUM CARBONATE (+) CHOLECALCIFEROL) [Concomitant]
     Dosage: UNK, QD
     Dates: start: 19970101
  4. VITAMINS (UNSPECIFIED) [Concomitant]
     Dosage: UNK, QD
     Dates: start: 19970101

REACTIONS (52)
  - BLADDER OUTLET OBSTRUCTION [None]
  - NEUROGENIC BLADDER [None]
  - ATELECTASIS [None]
  - MEMORY IMPAIRMENT [None]
  - ANGINA PECTORIS [None]
  - ELECTROCARDIOGRAM LOW VOLTAGE [None]
  - BACK PAIN [None]
  - DIVERTICULUM INTESTINAL [None]
  - SPINAL OSTEOARTHRITIS [None]
  - BLOOD GLUCOSE INCREASED [None]
  - PRESYNCOPE [None]
  - TONSILLECTOMY [None]
  - BIOPSY THYROID GLAND ABNORMAL [None]
  - HYPOKALAEMIA [None]
  - DERMATITIS ALLERGIC [None]
  - SCIATICA [None]
  - LIMB INJURY [None]
  - NECK PAIN [None]
  - FEMUR FRACTURE [None]
  - ADENOIDECTOMY [None]
  - THYROID NEOPLASM [None]
  - RENAL CYST [None]
  - NAUSEA [None]
  - RHINOPLASTY [None]
  - TYPE V HYPERLIPIDAEMIA [None]
  - LUNG NEOPLASM [None]
  - DEMENTIA ALZHEIMER'S TYPE [None]
  - CRANIOCEREBRAL INJURY [None]
  - CONTUSION [None]
  - OSTEOPOROSIS [None]
  - HEADACHE [None]
  - HIATUS HERNIA [None]
  - NEPHROLITHIASIS [None]
  - OSTEOARTHRITIS [None]
  - ACQUIRED DIAPHRAGMATIC EVENTRATION [None]
  - INTERNAL FIXATION OF FRACTURE [None]
  - STRESS FRACTURE [None]
  - LOW TURNOVER OSTEOPATHY [None]
  - URINARY TRACT INFECTION [None]
  - HYDRONEPHROSIS [None]
  - HYPERTENSION [None]
  - PARKINSON'S DISEASE [None]
  - DYSPNOEA [None]
  - FATIGUE [None]
  - AORTIC VALVE INCOMPETENCE [None]
  - POLLAKIURIA [None]
  - FALL [None]
  - DIZZINESS [None]
  - BREAST CANCER [None]
  - HEPATIC STEATOSIS [None]
  - BRADYCARDIA [None]
  - RIB FRACTURE [None]
